FAERS Safety Report 5587599-7 (Version None)
Quarter: 2008Q1

REPORT INFORMATION
  Report Type: 
  Country: None (occurrence: None)
  Receive Date: 20080110
  Receipt Date: 20071231
  Transmission Date: 20080703
  Serious: Yes (Death)
  Sender: FDA-Public Use
  Company Number: US-MERCK-0801USA00253

PATIENT
  Age: 56 Year
  Sex: Female

DRUGS (10)
  1. VYTORIN [Suspect]
     Route: 048
  2. QUETIAPINE FUMARATE [Suspect]
     Route: 048
  3. METOPROLOL [Suspect]
     Route: 048
  4. METAXALONE [Suspect]
     Route: 048
  5. ALPRAZOLAM [Suspect]
     Route: 048
  6. VENLAFAXINE HYDROCHLORIDE [Suspect]
     Route: 048
  7. CHLORPHENIRAMINE MALEATE [Suspect]
     Route: 048
  8. FEXOFENADINE HYDROCHLORIDE [Suspect]
     Route: 048
  9. ESTROGENS (UNSPECIFIED) [Suspect]
     Route: 048
  10. ACETAMINOPHEN, BUTALBITAL AND CAFFEINE [Suspect]
     Route: 048

REACTIONS (2)
  - COMPLETED SUICIDE [None]
  - OVERDOSE [None]
